FAERS Safety Report 6764641-9 (Version None)
Quarter: 2010Q2

REPORT INFORMATION
  Report Type: 
  Country: None (occurrence: None)
  Receive Date: 20100610
  Receipt Date: 20100526
  Transmission Date: 20101027
  Serious: Yes (Hospitalization, Disabling)
  Sender: FDA-Public Use
  Company Number: GB-BAUSCH-2010BL002830

PATIENT
  Age: 78 Year
  Sex: Female

DRUGS (1)
  1. PREDNISOLONE [Suspect]
     Indication: FACIAL PAIN

REACTIONS (4)
  - ATROPHY OF GLOBE [None]
  - BLINDNESS UNILATERAL [None]
  - EYE INFECTION FUNGAL [None]
  - UVEITIS [None]
